FAERS Safety Report 22206802 (Version 1)
Quarter: 2023Q2

REPORT INFORMATION
  Report Type: Spontaneous
  Country: ES (occurrence: ES)
  Receive Date: 20230413
  Receipt Date: 20230413
  Transmission Date: 20230721
  Serious: Yes (Life-Threatening)
  Sender: FDA-Public Use
  Company Number: None

PATIENT
  Age: 64 Year
  Sex: Male
  Weight: 74.9 kg

DRUGS (8)
  1. BORTEZOMIB [Suspect]
     Active Substance: BORTEZOMIB
     Indication: Plasma cell myeloma
     Dosage: 1 INJECTION OF 2.53 MG ON 02/14 AND ANOTHER ON 02/17, BORTEZOMIB (2928A)
     Route: 065
     Dates: start: 20230214, end: 20230217
  2. DARZALEX [Suspect]
     Active Substance: DARATUMUMAB
     Indication: Plasma cell myeloma
     Dosage: 1 SC INJECTION, UNIT DOSE AND STRENGTH : 1 800 MG 1 VIAL OF 15 ML
     Route: 065
     Dates: start: 20230214, end: 20230214
  3. REVLIMID [Suspect]
     Active Substance: LENALIDOMIDE
     Indication: Plasma cell myeloma
     Route: 065
     Dates: start: 20230214, end: 20230218
  4. ZOLEDRONIC ACID [Concomitant]
     Active Substance: ZOLEDRONIC ACID
     Indication: Prophylaxis
     Dosage: 1 DOSE 4 MG IV ON 02/14/2023 , ACIDO ZOLEDRONICO (1251A)
     Route: 042
     Dates: start: 20230214, end: 20230214
  5. ENOXAPARIN SODIUM [Concomitant]
     Active Substance: ENOXAPARIN SODIUM
     Indication: Prophylaxis
     Dosage: 40 MILLIGRAM DAILY; 1 SUBCUTANEOUS INJECTION OF 40MG ONCE A DAY , STRENGTH : 4,000 IU (40 MG)/ 0.4 M
     Route: 058
     Dates: start: 20230207
  6. DEXAMETHASONE [Concomitant]
     Active Substance: DEXAMETHASONE
     Indication: Plasma cell myeloma
     Dosage: 1 20MG TABLET A DAY (TUESDAY AND WEDNESDAY), DEXAMETASONA (722A)
     Dates: start: 20230214
  7. ACYCLOVIR [Concomitant]
     Active Substance: ACYCLOVIR
     Indication: Prophylaxis
     Dosage: 800 MILLIGRAM DAILY;  ACICLOVIR (201A), 1 800MG TABLET A DAY
     Dates: start: 20230214
  8. SULFAMETHOXAZOLE\TRIMETHOPRIM [Concomitant]
     Active Substance: SULFAMETHOXAZOLE\TRIMETHOPRIM
     Indication: Prophylaxis
     Dosage: 1 TABLET EVERY 12 HOURS TUESDAY AND THURSDAY , STRENGTH : 160 MG/800 MG , 50 TABLETS
     Dates: start: 20230214

REACTIONS (4)
  - Pneumonia [Recovered/Resolved]
  - Septic shock [Recovered/Resolved]
  - Pancytopenia [Recovered/Resolved]
  - Febrile neutropenia [Recovered/Resolved]

NARRATIVE: CASE EVENT DATE: 20230218
